FAERS Safety Report 4708279-3 (Version None)
Quarter: 2005Q3

REPORT INFORMATION
  Report Type: 
  Country: None (occurrence: None)
  Receive Date: 20050705
  Receipt Date: 20050705
  Transmission Date: 20060218
  Serious: Yes (Other)
  Sender: FDA-Public Use
  Company Number: None

PATIENT
  Age: 55 Year
  Sex: Female

DRUGS (1)
  1. SUDAFED S.A. [Suspect]
     Indication: NASAL CONGESTION
     Dosage: 2 TABS
     Dates: start: 20050604, end: 20050604

REACTIONS (1)
  - URINARY RETENTION [None]
